FAERS Safety Report 16827039 (Version 1)
Quarter: 2019Q3

REPORT INFORMATION
  Report Type: Spontaneous
  Country: US (occurrence: US)
  Receive Date: 20190919
  Receipt Date: 20190919
  Transmission Date: 20191005
  Serious: Yes (Hospitalization, Other)
  Sender: FDA-Public Use
  Company Number: US-MYLANLABS-2019M1086264

PATIENT
  Age: 26 Year
  Sex: Female

DRUGS (5)
  1. TACROLIMUS CAPSULES [Suspect]
     Active Substance: TACROLIMUS
     Indication: INTESTINAL TRANSPLANT
     Dosage: 10 MILLIGRAM, QD
     Route: 048
  2. NYSTATIN. [Concomitant]
     Active Substance: NYSTATIN
     Dosage: 100,000 UNITS PER ML, QID
     Dates: start: 201804
  3. TACROLIMUS CAPSULES [Suspect]
     Active Substance: TACROLIMUS
     Dosage: 12 MILLIGRAM, BID
     Route: 048
     Dates: start: 201908
  4. TACROLIMUS CAPSULES [Suspect]
     Active Substance: TACROLIMUS
     Dosage: 10 MILLIGRAM, QD
     Route: 048
     Dates: start: 20190905
  5. GABAPENTIN. [Concomitant]
     Active Substance: GABAPENTIN
     Dosage: UNK
     Dates: start: 20180424

REACTIONS (2)
  - Drug level increased [Recovering/Resolving]
  - Mental status changes [Recovered/Resolved]

NARRATIVE: CASE EVENT DATE: 2019
